FAERS Safety Report 21978011 (Version 1)
Quarter: 2023Q1

REPORT INFORMATION
  Report Type: Spontaneous
  Country: None (occurrence: US)
  Receive Date: 20230210
  Receipt Date: 20230210
  Transmission Date: 20230417
  Serious: No
  Sender: FDA-Public Use
  Company Number: US-ITALFARMACO SPA-2137744

PATIENT
  Age: 52 Year
  Sex: Female

DRUGS (19)
  1. TIGLUTIK [Suspect]
     Active Substance: RILUZOLE
     Indication: Amyotrophic lateral sclerosis
     Route: 048
     Dates: start: 20220913
  2. ACETYLCARNITINE [Concomitant]
     Active Substance: ACETYLCARNITINE
  3. ARMOUR THYROID [Concomitant]
     Active Substance: THYROID, PORCINE
  4. COENZYME Q10 [Concomitant]
     Active Substance: DIETARY SUPPLEMENT\UBIDECARENONE
  5. PRASTERONE [Concomitant]
     Active Substance: PRASTERONE
  6. FERROUS SULFATE [Concomitant]
     Active Substance: FERROUS SULFATE
  7. LIOTHYRONINE [Concomitant]
     Active Substance: LIOTHYRONINE
  8. LIPOSOMAL CURCUMIN GOLD [Concomitant]
  9. DIETARY SUPPLEMENT\HERBALS\MILK THISTLE [Concomitant]
     Active Substance: DIETARY SUPPLEMENT\HERBALS\MILK THISTLE
  10. NALTREXONE [Concomitant]
     Active Substance: NALTREXONE
  11. DOCONEXENT\ ICOSAPENT\ FISH OIL\ OMEGA-3 FATTY ACIDS [Concomitant]
     Active Substance: DOCONEXENT\ ICOSAPENT\ FISH OIL\ OMEGA-3 FATTY ACIDS
  12. MINERALS [Concomitant]
     Active Substance: MINERALS
  13. PROLAMINE IODINE [Concomitant]
  14. THIAMINE [Concomitant]
     Active Substance: THIAMINE
  15. TUDCABIL [Concomitant]
  16. VITAMIN B12 [Concomitant]
     Active Substance: CYANOCOBALAMIN
  17. VITAMIN C [Concomitant]
     Active Substance: ASCORBIC ACID
  18. VITAMIN D NOS [Concomitant]
     Active Substance: VITAMIN D NOS
  19. ZYPAN [Concomitant]

REACTIONS (1)
  - Hypoaesthesia oral [Unknown]
